FAERS Safety Report 5803186-7 (Version None)
Quarter: 2008Q3

REPORT INFORMATION
  Report Type: 
  Country: None (occurrence: None)
  Receive Date: 20080701
  Receipt Date: 20080208
  Transmission Date: 20090109
  Serious: No
  Sender: FDA-Public Use
  Company Number: US200802001888

PATIENT
  Sex: Male

DRUGS (6)
  1. HUMALOG [Suspect]
     Dosage: SUBCUTANEOUS
     Route: 058
     Dates: start: 20010101
  2. HUMALOG [Suspect]
     Dosage: SUBCUTANEOUS
     Route: 058
     Dates: start: 20080101
  3. HUMALOG [Suspect]
     Dosage: SUBCUTANEOUS
     Route: 058
     Dates: start: 20080101
  4. HUMALOG [Suspect]
  5. HUMALOG [Suspect]
     Dates: start: 20060101
  6. HUMALOG [Suspect]
     Dates: start: 20060101

REACTIONS (4)
  - BLOOD GLUCOSE INCREASED [None]
  - DRUG INEFFECTIVE [None]
  - GLYCOSYLATED HAEMOGLOBIN INCREASED [None]
  - HEART RATE INCREASED [None]
